FAERS Safety Report 11544537 (Version 2)
Quarter: 2015Q3

REPORT INFORMATION
  Report Type: Report from Study
  Country: CA (occurrence: CA)
  Receive Date: 20150924
  Receipt Date: 20150930
  Transmission Date: 20151125
  Serious: Yes (Hospitalization, Other)
  Sender: FDA-Public Use
  Company Number: CA-ABBVIE-15K-028-1465312-00

PATIENT
  Sex: Female

DRUGS (1)
  1. HUMIRA [Suspect]
     Active Substance: ADALIMUMAB
     Indication: CROHN^S DISEASE
     Route: 058
     Dates: start: 20131118, end: 2015

REACTIONS (4)
  - Drug effect decreased [Unknown]
  - Neoplasm malignant [Unknown]
  - Gastrointestinal inflammation [Recovering/Resolving]
  - Small intestinal obstruction [Recovering/Resolving]
